FAERS Safety Report 9700119 (Version 2)
Quarter: 2014Q1

REPORT INFORMATION
  Report Type: Spontaneous
  Country: US (occurrence: US)
  Receive Date: 20131121
  Receipt Date: 20140214
  Transmission Date: 20141002
  Serious: Yes (Hospitalization)
  Sender: FDA-Public Use
  Company Number: US-BRISTOL-MYERS SQUIBB COMPANY-19802065

PATIENT
  Age: 83 Year
  Sex: Female
  Weight: 67.57 kg

DRUGS (2)
  1. COUMADIN [Suspect]
     Indication: THROMBOSIS
  2. HYDROCHLOROTHIAZIDE W/TRIAMTERENE [Concomitant]
     Dosage: 1 DF : 37.5/25MG

REACTIONS (3)
  - Colitis ulcerative [Unknown]
  - Hypertension [Recovered/Resolved]
  - Cellulitis [Unknown]
